FAERS Safety Report 10526741 (Version 2)
Quarter: 2014Q4

REPORT INFORMATION
  Report Type: Spontaneous
  Country: US (occurrence: US)
  Receive Date: 20141020
  Receipt Date: 20141121
  Transmission Date: 20150528
  Serious: Yes (Hospitalization)
  Sender: FDA-Public Use
  Company Number: US-BIOGENIDEC-2014BI108487

PATIENT
  Age: 47 Year
  Sex: Male

DRUGS (6)
  1. POTASSIUM CHLORIDE ER [Concomitant]
     Active Substance: POTASSIUM CHLORIDE
  2. ZANAFLEX [Concomitant]
     Active Substance: TIZANIDINE HYDROCHLORIDE
  3. ADVIL [Concomitant]
     Active Substance: IBUPROFEN
  4. NEURONTIN [Concomitant]
     Active Substance: GABAPENTIN
  5. BACLOFEN. [Concomitant]
     Active Substance: BACLOFEN
  6. TECFIDERA [Suspect]
     Active Substance: DIMETHYL FUMARATE
     Indication: MULTIPLE SCLEROSIS
     Route: 048
     Dates: start: 20131227, end: 201408

REACTIONS (2)
  - Abdominal discomfort [Unknown]
  - Respiratory failure [Unknown]
